FAERS Safety Report 25581605 (Version 2)
Quarter: 2025Q3

REPORT INFORMATION
  Report Type: Spontaneous
  Country: CN (occurrence: CN)
  Receive Date: 20250719
  Receipt Date: 20250815
  Transmission Date: 20251021
  Serious: Yes (Congenital Anomaly)
  Sender: AMGEN
  Company Number: CN-AMGEN-CHNSP2025138552

PATIENT

DRUGS (1)
  1. ETANERCEPT [Suspect]
     Active Substance: ETANERCEPT
     Indication: Exposure during pregnancy
     Route: 064

REACTIONS (2)
  - Congenital anomaly [Unknown]
  - Premature baby [Unknown]
